FAERS Safety Report 8664011 (Version 2)
Quarter: 2013Q4

REPORT INFORMATION
  Report Type: Spontaneous
  Country: DE (occurrence: DE)
  Receive Date: 20120713
  Receipt Date: 20131031
  Transmission Date: 20140711
  Serious: Yes (Life-Threatening, Hospitalization)
  Sender: FDA-Public Use
  Company Number: DE-MSD-1207DEU002550

PATIENT
  Age: 69 Year
  Sex: Female
  Weight: 79.6 kg

DRUGS (3)
  1. VELMETIA [Suspect]
     Indication: TYPE 2 DIABETES MELLITUS
     Dosage: 1000 MG, BID
     Route: 048
     Dates: start: 20090109, end: 20120203
  2. BELOC-ZOK [Concomitant]
     Indication: HYPERTENSION
     Dosage: 1 DF, QD
     Route: 048
     Dates: start: 2007
  3. L-THYROXIN [Concomitant]
     Indication: GOITRE
     Dosage: 1 DF, QD
     Route: 048
     Dates: start: 2007

REACTIONS (1)
  - Thyroid cancer [Unknown]
